FAERS Safety Report 17466239 (Version 10)
Quarter: 2020Q3

REPORT INFORMATION
  Report Type: Report from Study
  Country: US (occurrence: US)
  Receive Date: 20200227
  Receipt Date: 20200819
  Transmission Date: 20201102
  Serious: Yes (Death)
  Sender: FDA-Public Use
  Company Number: NVSC2020US050061

PATIENT
  Age: 63 Year
  Sex: Female
  Weight: 82.54 kg

DRUGS (4)
  1. TREPROSTINIL. [Suspect]
     Active Substance: TREPROSTINIL
     Dosage: 24 NG/KG/MIN, CONTINOUS
     Route: 042
     Dates: start: 20200214
  2. TREPROSTINIL. [Suspect]
     Active Substance: TREPROSTINIL
     Dosage: 24 NG/KG/MIN, CONTINOUS
     Route: 042
     Dates: start: 20200214
  3. TREPROSTINIL. [Suspect]
     Active Substance: TREPROSTINIL
     Indication: PULMONARY ARTERIAL HYPERTENSION
     Dosage: UNK
     Route: 042
     Dates: start: 20200214
  4. ADEMPAS [Concomitant]
     Active Substance: RIOCIGUAT
     Indication: PRODUCT USED FOR UNKNOWN INDICATION
     Dosage: 1 MG, TID
     Route: 065

REACTIONS (13)
  - Death [Fatal]
  - Dyspepsia [Unknown]
  - Diarrhoea [Recovered/Resolved]
  - Pain in jaw [Recovered/Resolved]
  - Abdominal discomfort [Unknown]
  - Gastrointestinal disorder [Unknown]
  - Application site irritation [Unknown]
  - Weight increased [Unknown]
  - Fluid retention [Unknown]
  - Nausea [Unknown]
  - Insomnia [Unknown]
  - Application site pruritus [Unknown]
  - Hypotension [Unknown]

NARRATIVE: CASE EVENT DATE: 20200813
